FAERS Safety Report 5493322-7 (Version None)
Quarter: 2007Q4

REPORT INFORMATION
  Report Type: 
  Country: None (occurrence: None)
  Receive Date: 20071023
  Receipt Date: 20070508
  Transmission Date: 20080405
  Serious: No
  Sender: FDA-Public Use
  Company Number: US-BRISTOL-MYERS SQUIBB COMPANY-13740394

PATIENT
  Age: 55 Year
  Sex: Female

DRUGS (2)
  1. KENALOG-40 [Suspect]
     Indication: OSTEOARTHRITIS
     Route: 014
     Dates: start: 20070305, end: 20070305
  2. LIDOCAINE [Concomitant]

REACTIONS (1)
  - POSTMENOPAUSAL HAEMORRHAGE [None]
